FAERS Safety Report 4653557-X (Version None)
Quarter: 2005Q2

REPORT INFORMATION
  Report Type: 
  Country: None (occurrence: None)
  Receive Date: 20050404
  Receipt Date: 20050114
  Transmission Date: 20051028
  Serious: No
  Sender: FDA-Public Use
  Company Number: USA050188389

PATIENT
  Age: 63 Year
  Sex: Female
  Weight: 59 kg

DRUGS (3)
  1. CYMBALTA [Suspect]
     Indication: FIBROMYALGIA
     Dosage: 30 MG DAY
     Dates: start: 20050111
  2. XANAX (ALPRAZOLAM DUM) [Concomitant]
  3. NORCO [Concomitant]

REACTIONS (4)
  - HEADACHE [None]
  - MENTAL IMPAIRMENT [None]
  - STOMACH DISCOMFORT [None]
  - TREMOR [None]
